FAERS Safety Report 17425560 (Version 6)
Quarter: 2020Q2

REPORT INFORMATION
  Report Type: Report from Study
  Country: None (occurrence: FR)
  Receive Date: 20200212
  Receipt Date: 20200423
  Transmission Date: 20200713
  Serious: Yes (Disabling, Other)
  Sender: FDA-Public Use
  Company Number: FR-ABBVIE-19S-056-2618211-00

PATIENT
  Sex: Male

DRUGS (7)
  1. DUODOPA [Suspect]
     Active Substance: CARBIDOPA\LEVODOPA
     Dosage: MD 5ML,CFR 6.3 ML/H (8 AM TO1 PM)7 ML/H (1 PM TO 8 PM);CFR (AT NIGHT)?3ML/H (8PM TO 8 AM)
     Route: 050
     Dates: start: 20181203
  2. LEPONEX [Concomitant]
     Active Substance: CLOZAPINE
     Indication: PRODUCT USED FOR UNKNOWN INDICATION
  3. DUODOPA [Suspect]
     Active Substance: CARBIDOPA\LEVODOPA
     Dosage: 7AM TO 2PM MD:- 6.3 ML / H?2PM TO 8PM ED:- 6.8 ML / H EXTRA DOSE OF 0.1 ML AT 5 PM.
     Route: 050
  4. DUODOPA [Suspect]
     Active Substance: CARBIDOPA\LEVODOPA
     Route: 050
  5. DUODOPA [Suspect]
     Active Substance: CARBIDOPA\LEVODOPA
     Indication: PARKINSON^S DISEASE
     Dosage: CONTINUOUS FLOW RATE (DURING A NIGHT) 3ML/H
     Route: 050
     Dates: start: 20181203
  6. DUODOPA [Suspect]
     Active Substance: CARBIDOPA\LEVODOPA
     Dosage: MD 5ML,CFR 6.3 ML/H (7 AM TO 1 PM)7 ML/H(1 PM TO 8 PM);CFR(AT NIGHT)?3.2ML/H(8PM TO 8 AM)
     Route: 050
     Dates: start: 202002
  7. MODOPAR [Suspect]
     Active Substance: BENSERAZIDE HYDROCHLORIDE\LEVODOPA
     Indication: PARKINSON^S DISEASE
     Dosage: 3 DOSE PER NIGHT
     Route: 065
     Dates: start: 202002

REACTIONS (17)
  - Device leakage [Unknown]
  - Freezing phenomenon [Not Recovered/Not Resolved]
  - Dementia [Not Recovered/Not Resolved]
  - Disorientation [Not Recovered/Not Resolved]
  - Parkinsonian gait [Unknown]
  - Fall [Unknown]
  - Pain in extremity [Unknown]
  - Family stress [Not Recovered/Not Resolved]
  - Product use complaint [Not Recovered/Not Resolved]
  - Hyperphagia [Unknown]
  - Urinary incontinence [Not Recovered/Not Resolved]
  - Salivary hypersecretion [Unknown]
  - Device dislocation [Unknown]
  - On and off phenomenon [Not Recovered/Not Resolved]
  - Dysstasia [Not Recovered/Not Resolved]
  - Fall [Unknown]
  - Cognitive disorder [Not Recovered/Not Resolved]

NARRATIVE: CASE EVENT DATE: 2019
